FAERS Safety Report 7046915-X (Version None)
Quarter: 2010Q4

REPORT INFORMATION
  Report Type: 
  Country: None (occurrence: None)
  Receive Date: 20101015
  Receipt Date: 20101011
  Transmission Date: 20110411
  Serious: Yes (Death, Hospitalization, Other)
  Sender: FDA-Public Use
  Company Number: PHHY2010BR68329

PATIENT
  Sex: Female

DRUGS (4)
  1. EXELON [Suspect]
     Indication: DEMENTIA ALZHEIMER'S TYPE
     Dosage: 1.5 MG, BID
     Route: 048
  2. EXELON [Suspect]
     Dosage: 3 MG, BID
     Route: 048
  3. ALOIS [Concomitant]
     Indication: DEMENTIA ALZHEIMER'S TYPE
     Dosage: 10 MG, BID
     Route: 048
  4. TRAZODONE HCL [Concomitant]
     Indication: DEMENTIA ALZHEIMER'S TYPE
     Dosage: 50 MG, BID
     Route: 048

REACTIONS (2)
  - DEATH [None]
  - SYNCOPE [None]
